FAERS Safety Report 7166280-7 (Version None)
Quarter: 2010Q4

REPORT INFORMATION
  Report Type: 
  Country: None (occurrence: None)
  Receive Date: 20101216
  Receipt Date: 20101203
  Transmission Date: 20110411
  Serious: Yes (Hospitalization, Disabling, Other)
  Sender: FDA-Public Use
  Company Number: US-ELI_LILLY_AND_COMPANY-US201006005445

PATIENT
  Sex: Female

DRUGS (14)
  1. FORTEO [Suspect]
     Indication: OSTEOPOROSIS
  2. FORTEO [Suspect]
  3. METOPROLOL [Concomitant]
  4. LISINOPRIL [Concomitant]
  5. EFFEXOR [Concomitant]
     Indication: DEPRESSION
  6. LOVAZA [Concomitant]
  7. POTASSIUM CHLORIDE [Concomitant]
     Indication: BLOOD POTASSIUM DECREASED
  8. LASIX [Concomitant]
  9. PREDNISOLONE ACETATE [Concomitant]
  10. VITAMINS [Concomitant]
  11. NIACIN [Concomitant]
  12. VIT D [Concomitant]
  13. AMLODIPINE [Concomitant]
  14. POLYMYXIN [Concomitant]

REACTIONS (10)
  - ABNORMAL SENSATION IN EYE [None]
  - BLOOD PRESSURE INCREASED [None]
  - CATARACT OPERATION [None]
  - CEREBROVASCULAR ACCIDENT [None]
  - MEMORY IMPAIRMENT [None]
  - OSTEOARTHRITIS [None]
  - PHYSICAL DISABILITY [None]
  - SPEECH DISORDER [None]
  - VISUAL ACUITY REDUCED [None]
  - VITAMIN D DECREASED [None]
